FAERS Safety Report 7736957-0 (Version None)
Quarter: 2011Q3

REPORT INFORMATION
  Report Type: 
  Country: None (occurrence: None)
  Receive Date: 20110908
  Receipt Date: 20110831
  Transmission Date: 20111222
  Serious: Yes (Life-Threatening, Hospitalization)
  Sender: FDA-Public Use
  Company Number: IL-ROCHE-799900

PATIENT
  Weight: 72 kg

DRUGS (1)
  1. VEMURAFENIB [Suspect]
     Route: 048
     Dates: start: 20110801

REACTIONS (2)
  - DEPRESSED LEVEL OF CONSCIOUSNESS [None]
  - COGNITIVE DISORDER [None]
